FAERS Safety Report 24411888 (Version 1)
Quarter: 2024Q4

REPORT INFORMATION
  Report Type: Spontaneous
  Country: US (occurrence: None)
  Receive Date: 20241007
  Receipt Date: 20241007
  Transmission Date: 20250114
  Serious: Yes (Life-Threatening)
  Sender: Public
  Company Number: None

PATIENT
  Age: 67 Year
  Sex: Male

DRUGS (1)
  1. NITROFURANTOIN MACROCRYSTALS [Suspect]
     Active Substance: NITROFURANTOIN
     Indication: Cystitis
     Dosage: FREQUENCY : DAILY;?
     Route: 048

REACTIONS (1)
  - Throat tightness [None]

NARRATIVE: CASE EVENT DATE: 20240408
